FAERS Safety Report 5342483-9 (Version None)
Quarter: 2007Q2

REPORT INFORMATION
  Report Type: 
  Country: None (occurrence: None)
  Receive Date: 20070601
  Receipt Date: 20070522
  Transmission Date: 20071010
  Serious: Yes (Other)
  Sender: FDA-Public Use
  Company Number: US-PFIZER INC-2007018813

PATIENT
  Sex: Male
  Weight: 88.5 kg

DRUGS (12)
  1. EXUBERA [Suspect]
     Indication: DIABETES MELLITUS
     Route: 055
  2. ALL OTHER THERAPEUTIC PRODUCTS [Concomitant]
  3. GUAIFENESIN [Concomitant]
  4. QUINAPRIL HCL [Concomitant]
  5. AVAPRO [Concomitant]
  6. BISOPROLOL FUMARATE [Concomitant]
  7. LIPITOR [Concomitant]
  8. METFORMIN HCL [Concomitant]
  9. FUROSEMIDE [Concomitant]
  10. HYDROCHLOROTHIAZIDE [Concomitant]
  11. DILTIAZEM [Concomitant]
  12. WARFARIN SODIUM [Concomitant]
     Dosage: TEXT:5 MG AND 1 MG-FREQ:3 MG 3X WEEKLY AND 2.5 MG 3X WEEKLY

REACTIONS (4)
  - BLOOD GLUCOSE INCREASED [None]
  - CHRONIC OBSTRUCTIVE PULMONARY DISEASE [None]
  - COUGH [None]
  - INCREASED UPPER AIRWAY SECRETION [None]
